FAERS Safety Report 6635432-4 (Version None)
Quarter: 2010Q1

REPORT INFORMATION
  Report Type: 
  Country: None (occurrence: None)
  Receive Date: 20100315
  Receipt Date: 20090731
  Transmission Date: 20100710
  Serious: No
  Sender: FDA-Public Use
  Company Number: US-ABBOTT-09P-163-0589502-00

PATIENT
  Sex: Female

DRUGS (1)
  1. DEPAKOTE [Suspect]
     Indication: MIGRAINE
     Route: 048
     Dates: start: 20070101, end: 20070101

REACTIONS (1)
  - URTICARIA [None]
